FAERS Safety Report 15879536 (Version 5)
Quarter: 2020Q2

REPORT INFORMATION
  Report Type: Report from Study
  Country: US (occurrence: US)
  Receive Date: 20190128
  Receipt Date: 20200423
  Transmission Date: 20200713
  Serious: Yes (Other)
  Sender: FDA-Public Use
  Company Number: PHEH2019US003475

PATIENT
  Sex: Female

DRUGS (1)
  1. GILENYA [Suspect]
     Active Substance: FINGOLIMOD HYDROCHLORIDE
     Indication: MULTIPLE SCLEROSIS
     Dosage: 0.5 MG, QD
     Route: 048
     Dates: start: 20180617

REACTIONS (10)
  - Influenza like illness [Unknown]
  - Feeling abnormal [Unknown]
  - Hypoacusis [Not Recovered/Not Resolved]
  - Central nervous system lesion [Unknown]
  - Tinnitus [Not Recovered/Not Resolved]
  - Fatigue [Unknown]
  - Memory impairment [Unknown]
  - Product dose omission [Unknown]
  - Pain [Unknown]
  - Feeling cold [Not Recovered/Not Resolved]
